FAERS Safety Report 9511555 (Version 1)
Quarter: 2013Q3

REPORT INFORMATION
  Report Type: Spontaneous
  Country: US (occurrence: None)
  Receive Date: 20130909
  Receipt Date: 20130909
  Transmission Date: 20140515
  Serious: Yes (Life-Threatening, Hospitalization)
  Sender: FDA-Public Use
  Company Number: None

PATIENT
  Age: 41 Year
  Sex: Female
  Weight: 72.58 kg

DRUGS (1)
  1. PROZAC [Suspect]
     Indication: BIPOLAR DISORDER

REACTIONS (1)
  - Suicide attempt [None]
